FAERS Safety Report 12747599 (Version 1)
Quarter: 2016Q3

REPORT INFORMATION
  Report Type: Spontaneous
  Country: US (occurrence: US)
  Receive Date: 20160915
  Receipt Date: 20160915
  Transmission Date: 20161109
  Serious: No
  Sender: FDA-Public Use
  Company Number: US-JAZZ-2016-US-009947

PATIENT
  Sex: Female
  Weight: 111.11 kg

DRUGS (48)
  1. FISH OIL [Concomitant]
     Active Substance: FISH OIL
  2. LEVOFLOXACIN. [Concomitant]
     Active Substance: LEVOFLOXACIN
  3. PANTOPRAZOLE SODIUM. [Concomitant]
     Active Substance: PANTOPRAZOLE SODIUM
  4. PROAIR HFA [Concomitant]
     Active Substance: ALBUTEROL SULFATE
  5. VICODIN [Concomitant]
     Active Substance: ACETAMINOPHEN\HYDROCODONE BITARTRATE
  6. XYREM [Suspect]
     Active Substance: SODIUM OXYBATE
     Dosage: 4.5 G, FIRST DOSE
     Route: 048
     Dates: start: 201512
  7. TIZANIDINE HCL [Concomitant]
     Active Substance: TIZANIDINE HYDROCHLORIDE
     Indication: MIGRAINE
  8. LEXAPRO [Concomitant]
     Active Substance: ESCITALOPRAM OXALATE
  9. NASCOBAL [Concomitant]
     Active Substance: CYANOCOBALAMIN
  10. VITAMIN D [Concomitant]
     Active Substance: CHOLECALCIFEROL
  11. DICLOFENAC SODIUM. [Concomitant]
     Active Substance: DICLOFENAC SODIUM
  12. HYDROCODONE/ACETAMINOPHEN [Concomitant]
     Active Substance: ACETAMINOPHEN\HYDROCODONE
  13. BOTOX [Concomitant]
     Active Substance: ONABOTULINUMTOXINA
  14. AMBIEN CR [Concomitant]
     Active Substance: ZOLPIDEM TARTRATE
  15. XYREM [Suspect]
     Active Substance: SODIUM OXYBATE
     Dosage: DOSE ADJUSTMENTS
     Route: 048
  16. OCEAN SALINE NASAL SPRAY [Concomitant]
     Active Substance: SODIUM CHLORIDE
  17. DIAZEPAM. [Concomitant]
     Active Substance: DIAZEPAM
  18. LIDOCAINE. [Concomitant]
     Active Substance: LIDOCAINE
  19. ONDANSETRON [Concomitant]
     Active Substance: ONDANSETRON
  20. XYREM [Suspect]
     Active Substance: SODIUM OXYBATE
     Indication: SLEEP DISORDER
     Dosage: 0.75 G, BID
     Route: 048
     Dates: start: 201410, end: 201411
  21. XYREM [Suspect]
     Active Substance: SODIUM OXYBATE
     Dosage: 3 G, SECOND DOSE
     Route: 048
     Dates: start: 201512
  22. FLONASE [Concomitant]
     Active Substance: FLUTICASONE PROPIONATE
  23. ZYRTEC [Concomitant]
     Active Substance: CETIRIZINE HYDROCHLORIDE
  24. TYLENOL ARTHRITIS PAIN [Concomitant]
     Active Substance: ACETAMINOPHEN
  25. LEVAQUIN [Concomitant]
     Active Substance: LEVOFLOXACIN
  26. AFRIN [Concomitant]
     Active Substance: OXYMETAZOLINE
  27. SIMVASTATIN. [Concomitant]
     Active Substance: SIMVASTATIN
     Indication: CEREBROVASCULAR ACCIDENT
  28. KEFLEX [Concomitant]
     Active Substance: CEPHALEXIN
  29. NUCYNTA [Concomitant]
     Active Substance: TAPENTADOL HYDROCHLORIDE
  30. TRIAMCINOLONE [Concomitant]
     Active Substance: TRIAMCINOLONE
  31. ALBUTEROL. [Concomitant]
     Active Substance: ALBUTEROL
  32. ZOLPIDEM TARTRATE. [Concomitant]
     Active Substance: ZOLPIDEM TARTRATE
  33. COENZYME Q10 [Concomitant]
     Active Substance: UBIDECARENONE
     Indication: SUPPLEMENTATION THERAPY
  34. VITAMIN D3 [Concomitant]
     Active Substance: CHOLECALCIFEROL
     Indication: SUPPLEMENTATION THERAPY
  35. RITALIN [Concomitant]
     Active Substance: METHYLPHENIDATE HYDROCHLORIDE
     Indication: SOMNOLENCE
  36. ALLEGRA ALLERGY [Concomitant]
     Active Substance: FEXOFENADINE HYDROCHLORIDE
  37. PREDNISONE. [Concomitant]
     Active Substance: PREDNISONE
  38. ASPIRIN. [Concomitant]
     Active Substance: ASPIRIN
     Indication: CEREBROVASCULAR ACCIDENT
  39. RIBOFLAVIN [Concomitant]
     Active Substance: RIBOFLAVIN
     Indication: SUPPLEMENTATION THERAPY
  40. ALPRAZOLAM. [Concomitant]
     Active Substance: ALPRAZOLAM
  41. TAMSULOSIN HCL [Concomitant]
     Active Substance: TAMSULOSIN
  42. XANAX [Concomitant]
     Active Substance: ALPRAZOLAM
  43. VITAMIN B2 [Concomitant]
     Active Substance: RIBOFLAVIN
  44. MULTIVITAMINS WITH IRON [Concomitant]
     Active Substance: IRON\VITAMINS
     Indication: SUPPLEMENTATION THERAPY
  45. VITAMIN B12 [Concomitant]
     Active Substance: CYANOCOBALAMIN
     Indication: SUPPLEMENTATION THERAPY
  46. PROTONIX [Concomitant]
     Active Substance: PANTOPRAZOLE SODIUM
     Indication: GASTROOESOPHAGEAL REFLUX DISEASE
  47. DOXYCYCLINE HYCLATE. [Concomitant]
     Active Substance: DOXYCYCLINE HYCLATE
  48. PHENERGAN [Concomitant]
     Active Substance: PROMETHAZINE HYDROCHLORIDE

REACTIONS (2)
  - Insomnia [Not Recovered/Not Resolved]
  - Stress [Unknown]
